FAERS Safety Report 8732771 (Version 2)
Quarter: 2012Q4

REPORT INFORMATION
  Report Type: 
  Country: US (occurrence: US)
  Receive Date: 20120820
  Receipt Date: 20120830
  Transmission Date: 20130627
  Serious: No
  Sender: FDA-Public Use
  Company Number: US-PFIZER INC-2012198388

PATIENT
  Age: 56 Year
  Sex: Male
  Weight: 79.37 kg

DRUGS (1)
  1. LYRICA [Suspect]
     Indication: FIBROMYALGIA
     Dosage: 50 mg, 2x/day
     Route: 048
     Dates: start: 20120808

REACTIONS (10)
  - Drug ineffective [Unknown]
  - Pyrexia [Not Recovered/Not Resolved]
  - Muscular weakness [Unknown]
  - Flushing [Unknown]
  - Anxiety [Unknown]
  - Agitation [Unknown]
  - Irritability [Unknown]
  - Asthenia [Unknown]
  - Fatigue [Unknown]
  - Dizziness [Unknown]
